FAERS Safety Report 18260425 (Version 1)
Quarter: 2020Q3

REPORT INFORMATION
  Report Type: Spontaneous
  Country: GB (occurrence: GB)
  Receive Date: 20200914
  Receipt Date: 20200914
  Transmission Date: 20201103
  Serious: Yes (Hospitalization, Disabling, Other)
  Sender: FDA-Public Use
  Company Number: GB-SUN PHARMACEUTICAL INDUSTRIES LTD-2020RR-260625

PATIENT
  Age: 31 Year
  Sex: Male
  Weight: 92.07 kg

DRUGS (2)
  1. PREGABALIN. [Suspect]
     Active Substance: PREGABALIN
     Indication: ANXIETY
     Dosage: 200 MILLIGRAM, UNK
     Route: 048
     Dates: start: 20100801, end: 20170505
  2. PAROXETINE. [Concomitant]
     Active Substance: PAROXETINE
     Indication: PRODUCT USED FOR UNKNOWN INDICATION
     Dosage: ()
     Route: 065

REACTIONS (6)
  - Insomnia [Unknown]
  - Dizziness [Recovering/Resolving]
  - Suicidal ideation [Unknown]
  - Fatigue [Recovering/Resolving]
  - Withdrawal syndrome [Unknown]
  - Migraine [Recovering/Resolving]

NARRATIVE: CASE EVENT DATE: 20150301
